FAERS Safety Report 9676241 (Version 1)
Quarter: 2013Q4

REPORT INFORMATION
  Report Type: Spontaneous
  Country: US (occurrence: US)
  Receive Date: 20131107
  Receipt Date: 20131107
  Transmission Date: 20140711
  Serious: No
  Sender: FDA-Public Use
  Company Number: US-ENDO PHARMACEUTICALS INC.-METC20120007

PATIENT
  Age: 44 Year
  Sex: Male
  Weight: 72.64 kg

DRUGS (1)
  1. METHOCARBAMOL TABLETS [Suspect]
     Indication: MUSCLE TIGHTNESS
     Dosage: UNKNOWN
     Route: 048
     Dates: start: 201201

REACTIONS (3)
  - Faeces soft [Not Recovered/Not Resolved]
  - Flatulence [Not Recovered/Not Resolved]
  - Abdominal distension [Not Recovered/Not Resolved]
